FAERS Safety Report 4353158-7 (Version None)
Quarter: 2004Q2

REPORT INFORMATION
  Report Type: 
  Country: None (occurrence: None)
  Receive Date: 20040503
  Receipt Date: 20040503
  Transmission Date: 20050107
  Serious: No
  Sender: FDA-Public Use
  Company Number: None

PATIENT
  Age: 34 Year
  Sex: Female
  Weight: 118.8424 kg

DRUGS (2)
  1. BEXTRA [Suspect]
     Indication: ENDOMETRIOSIS
     Dosage: 10MG DAILY
  2. SYNTHROID [Concomitant]

REACTIONS (4)
  - DIZZINESS [None]
  - NEURITIS [None]
  - TINNITUS [None]
  - VERTIGO [None]
